FAERS Safety Report 9298766 (Version 2)
Quarter: 2013Q2

REPORT INFORMATION
  Report Type: Report from Study
  Country: US (occurrence: US)
  Receive Date: 20130520
  Receipt Date: 20130617
  Transmission Date: 20140414
  Serious: Yes (Hospitalization)
  Sender: FDA-Public Use
  Company Number: US-AMGEN-USACT2013035144

PATIENT
  Age: 53 Year
  Sex: Female
  Weight: 74.8 kg

DRUGS (6)
  1. PANITUMUMAB [Suspect]
     Indication: NON-SMALL CELL LUNG CANCER
     Dosage: 200 MG, QWK
     Route: 042
     Dates: start: 20130130, end: 20130306
  2. PACLITAXEL [Concomitant]
     Indication: NON-SMALL CELL LUNG CANCER
     Dosage: 92 MG, QWK
     Route: 042
     Dates: start: 20130130, end: 20130306
  3. CARBOPLATIN [Concomitant]
     Indication: NON-SMALL CELL LUNG CANCER
     Dosage: 300 MG, QWK
     Route: 042
     Dates: start: 20130130, end: 20130306
  4. HYDROCODONE W/ACETAMINOPHEN [Concomitant]
     Dosage: UNK
     Dates: start: 20130417
  5. ALBUTEROL [Concomitant]
     Dosage: 108 MUG, UNK
  6. ALPRAZOLAM [Concomitant]
     Dosage: 1 MG, TID

REACTIONS (1)
  - Lung infection [Recovered/Resolved]
